FAERS Safety Report 25506428 (Version 1)
Quarter: 2025Q3

REPORT INFORMATION
  Report Type: Spontaneous
  Country: US (occurrence: US)
  Receive Date: 20250702
  Receipt Date: 20250702
  Transmission Date: 20251020
  Serious: Yes (Hospitalization)
  Sender: RADIUS PHARM
  Company Number: US-RADIUS HEALTH INC.-US-RADIUS-25046882

PATIENT
  Sex: Female

DRUGS (1)
  1. TYMLOS [Suspect]
     Active Substance: ABALOPARATIDE
     Indication: Senile osteoporosis
     Dosage: 80 MICROGRAM, QD
     Route: 058
     Dates: start: 202502

REACTIONS (10)
  - Hospitalisation [Unknown]
  - Impaired driving ability [Unknown]
  - Dysstasia [Unknown]
  - Night sweats [Not Recovered/Not Resolved]
  - Menopausal symptoms [Unknown]
  - Hot flush [Unknown]
  - Dizziness [Unknown]
  - Bone pain [Unknown]
  - Product dose omission issue [Unknown]
  - Nausea [Unknown]

NARRATIVE: CASE EVENT DATE: 20250101
